FAERS Safety Report 6080232-X (Version None)
Quarter: 2009Q1

REPORT INFORMATION
  Report Type: 
  Country: None (occurrence: None)
  Receive Date: 20090217
  Receipt Date: 20090210
  Transmission Date: 20090719
  Serious: Yes (Hospitalization, Other)
  Sender: FDA-Public Use
  Company Number: US-ELI_LILLY_AND_COMPANY-US200902002259

PATIENT
  Age: 69 Year
  Sex: Female

DRUGS (5)
  1. HUMULIN N [Suspect]
     Indication: DIABETES MELLITUS
     Dosage: 30 U, 2/D
     Dates: start: 19990101
  2. HUMULIN N [Suspect]
     Dosage: 30 U, 2/D
     Dates: start: 19990101
  3. HUMULIN R [Suspect]
     Indication: DIABETES MELLITUS
     Dosage: 10 U, 2/D
     Dates: start: 19990101
  4. HUMULIN R [Suspect]
     Dosage: 10 U, 2/D
     Dates: start: 19990101
  5. ANTIBIOTICS [Concomitant]
     Indication: LOCALISED INFECTION

REACTIONS (13)
  - ARTHRALGIA [None]
  - BLISTER [None]
  - BREAST CANCER [None]
  - CATARACT [None]
  - HYPOACUSIS [None]
  - HYPOAESTHESIA [None]
  - LOCALISED INFECTION [None]
  - LYMPHOEDEMA [None]
  - MYOPIA [None]
  - NEUROPATHIC ARTHROPATHY [None]
  - RETINAL HAEMORRHAGE [None]
  - SKIN CANCER [None]
  - VISUAL ACUITY REDUCED [None]
